FAERS Safety Report 5408203-4 (Version None)
Quarter: 2007Q3

REPORT INFORMATION
  Report Type: 
  Country: None (occurrence: None)
  Receive Date: 20070806
  Receipt Date: 20070806
  Transmission Date: 20080115
  Serious: Yes (Other)
  Sender: FDA-Public Use
  Company Number: PHBS2007JP11792

PATIENT
  Age: 78 Year
  Sex: Male

DRUGS (1)
  1. VISUDYNE [Suspect]
     Indication: CHORIORETINOPATHY

REACTIONS (3)
  - DETACHMENT OF RETINAL PIGMENT EPITHELIUM [None]
  - RETINAL DETACHMENT [None]
  - RETINAL HAEMORRHAGE [None]
